FAERS Safety Report 7527558 (Version 3)
Quarter: 2014Q2

REPORT INFORMATION
  Report Type: Spontaneous
  Country: None (occurrence: None)
  Receive Date: 20100722
  Receipt Date: 20140422
  Transmission Date: 20141212
  Serious: Yes (Hospitalization, Other)
  Sender: FDA-Public Use
  Company Number: 2010S1004361

PATIENT
  Age: 70 Year
  Sex: Female
  Weight: 72.12 kg

DRUGS (7)
  1. PHOSPHOSODA [Suspect]
     Indication: COLONOSCOPY
     Route: 048
     Dates: start: 20080723, end: 20080723
  2. COZAAR [Concomitant]
  3. SIMVASTATIN [Concomitant]
  4. METOPROLOL TARTRATE [Concomitant]
  5. ESTRADIOL [Concomitant]
  6. HYDROCODONE/ACETAMINOPHEN [Concomitant]
  7. BISACODYL [Suspect]
     Indication: COLONOSCOPY
     Route: 048
     Dates: start: 20080723, end: 20080723

REACTIONS (17)
  - Dialysis [None]
  - Diarrhoea [None]
  - Renal failure acute [None]
  - Renal failure chronic [None]
  - Anaemia [None]
  - Dehydration [None]
  - Hypovolaemia [None]
  - Decreased appetite [None]
  - Vomiting [None]
  - Weight decreased [None]
  - Renal tubular necrosis [None]
  - Dysgeusia [None]
  - Nephritis [None]
  - Nausea [None]
  - Fatigue [None]
  - Acute phosphate nephropathy [None]
  - Nephrogenic anaemia [None]
